FAERS Safety Report 15889951 (Version 1)
Quarter: 2019Q1

REPORT INFORMATION
  Report Type: Spontaneous
  Country: US (occurrence: US)
  Receive Date: 20190130
  Receipt Date: 20190130
  Transmission Date: 20190417
  Serious: No
  Sender: FDA-Public Use
  Company Number: US-GLAXOSMITHKLINE-US2019013422

PATIENT
  Age: 47 Year
  Sex: Male

DRUGS (1)
  1. ALLI [Suspect]
     Active Substance: ORLISTAT
     Indication: WEIGHT LOSS DIET
     Dosage: 1 DF, UNK
     Route: 048
     Dates: start: 20190115, end: 20190122

REACTIONS (5)
  - Pruritus [Unknown]
  - Hypersensitivity [Unknown]
  - Anal incontinence [Unknown]
  - Drug ineffective [Unknown]
  - Diarrhoea [Unknown]

NARRATIVE: CASE EVENT DATE: 20190118
